FAERS Safety Report 7126128-3 (Version None)
Quarter: 2010Q4

REPORT INFORMATION
  Report Type: 
  Country: None (occurrence: None)
  Receive Date: 20101129
  Receipt Date: 20101119
  Transmission Date: 20110411
  Serious: Yes (Hospitalization)
  Sender: FDA-Public Use
  Company Number: US-TEVA-255268USA

PATIENT
  Sex: Male
  Weight: 104.42 kg

DRUGS (1)
  1. COPAXONE [Suspect]
     Indication: MULTIPLE SCLEROSIS
     Route: 058
     Dates: start: 20101109, end: 20101118

REACTIONS (2)
  - DYSPNOEA [None]
  - URTICARIA [None]
